FAERS Safety Report 23339455 (Version 1)
Quarter: 2023Q4

REPORT INFORMATION
  Report Type: Spontaneous
  Country: FR (occurrence: FR)
  Receive Date: 20231226
  Receipt Date: 20231226
  Transmission Date: 20240110
  Serious: Yes (Life-Threatening, Other)
  Sender: FDA-Public Use
  Company Number: None

PATIENT
  Age: 57 Year
  Sex: Male

DRUGS (7)
  1. ARIPIPRAZOLE [Suspect]
     Active Substance: ARIPIPRAZOLE
     Indication: Bipolar disorder
     Dosage: UNK UNK, QD
     Route: 048
     Dates: start: 20231111, end: 20231111
  2. PRAZEPAM [Suspect]
     Active Substance: PRAZEPAM
     Indication: Bipolar disorder
     Dosage: UNK UNK, QD
     Route: 048
     Dates: start: 20231111, end: 20231111
  3. ALCOHOL [Suspect]
     Active Substance: ALCOHOL
     Indication: Toxicity to various agents
     Dosage: UNK UNK, QD
     Route: 048
     Dates: start: 20231111, end: 20231111
  4. PRAVASTATIN SODIUM [Suspect]
     Active Substance: PRAVASTATIN SODIUM
     Indication: Dyslipidaemia
     Dosage: UNK UNK, QD
     Route: 048
     Dates: start: 20231111, end: 20231111
  5. RAMIPRIL [Suspect]
     Active Substance: RAMIPRIL
     Indication: Hypertension
     Dosage: UNK UNK, QD
     Route: 048
     Dates: start: 20231111, end: 20231111
  6. TRIMEPRAZINE [Suspect]
     Active Substance: TRIMEPRAZINE
     Indication: Bipolar disorder
     Dosage: UNK UNK, QD
     Route: 048
     Dates: start: 20231111, end: 20231111
  7. ZOPICLONE [Suspect]
     Active Substance: ZOPICLONE
     Indication: Bipolar disorder
     Dosage: UNK UNK, QD
     Route: 048
     Dates: start: 20231111, end: 20231111

REACTIONS (1)
  - Nephrogenic diabetes insipidus [Recovered/Resolved]

NARRATIVE: CASE EVENT DATE: 20231111
